FAERS Safety Report 8963911 (Version 1)
Quarter: 2012Q4

REPORT INFORMATION
  Report Type: Report from Study
  Country: FR (occurrence: US)
  Receive Date: 20121214
  Receipt Date: 20121214
  Transmission Date: 20130627
  Serious: Yes (Hospitalization)
  Sender: FDA-Public Use
  Company Number: US-SANOFI-AVENTIS-200419795US

PATIENT
  Age: 44 Year
  Sex: Female
  Weight: 93.5 kg

DRUGS (1)
  1. DOCETAXEL [Suspect]
     Indication: BREAST CARCINOMA
     Route: 042
     Dates: start: 20020722, end: 20021226

REACTIONS (4)
  - Congestive cardiomyopathy [Recovered/Resolved]
  - Pleural effusion [Recovered/Resolved]
  - Dyspnoea [Recovered/Resolved]
  - Chest pain [Recovered/Resolved]
